FAERS Safety Report 15566249 (Version 1)
Quarter: 2018Q4

REPORT INFORMATION
  Report Type: Spontaneous
  Country: FR (occurrence: FR)
  Receive Date: 20181030
  Receipt Date: 20181030
  Transmission Date: 20190205
  Serious: Yes (Life-Threatening, Hospitalization)
  Sender: FDA-Public Use
  Company Number: PHHY2018FR140292

PATIENT
  Age: 50 Year
  Sex: Female
  Weight: 99 kg

DRUGS (3)
  1. TRAMADOL. [Suspect]
     Active Substance: TRAMADOL
     Indication: PRODUCT USED FOR UNKNOWN INDICATION
     Dosage: 39 G, UNK
     Route: 048
  2. ALPRAZOLAM. [Suspect]
     Active Substance: ALPRAZOLAM
     Indication: PRODUCT USED FOR UNKNOWN INDICATION
     Dosage: 15 G, UNK
     Route: 048
  3. THIOPENTAL INRESA [Suspect]
     Active Substance: THIOPENTAL
     Indication: STATUS EPILEPTICUS
     Dosage: 400 MG, UNK
     Route: 042

REACTIONS (6)
  - Status epilepticus [Recovered/Resolved]
  - Ventricular fibrillation [Recovered/Resolved with Sequelae]
  - Coma [Recovered/Resolved with Sequelae]
  - Cardiogenic shock [Recovering/Resolving]
  - Respiratory depression [Recovered/Resolved]
  - Overdose [Recovered/Resolved]

NARRATIVE: CASE EVENT DATE: 20140602
